FAERS Safety Report 16411074 (Version 2)
Quarter: 2019Q3

REPORT INFORMATION
  Report Type: Report from Study
  Country: CA (occurrence: CA)
  Receive Date: 20190610
  Receipt Date: 20190718
  Transmission Date: 20191004
  Serious: Yes (Other)
  Sender: FDA-Public Use
  Company Number: CA-BAYER-2018-177485

PATIENT
  Age: 75 Year
  Sex: Male

DRUGS (1)
  1. STIVARGA [Suspect]
     Active Substance: REGORAFENIB
     Dosage: 80 MG DAILY
     Route: 048
     Dates: start: 20180919

REACTIONS (7)
  - Drug ineffective [Unknown]
  - Arthralgia [Not Recovered/Not Resolved]
  - Joint swelling [Not Recovered/Not Resolved]
  - Off label use [Not Recovered/Not Resolved]
  - Neuropathy peripheral [None]
  - Blood pressure increased [Not Recovered/Not Resolved]
  - Pain in extremity [Not Recovered/Not Resolved]

NARRATIVE: CASE EVENT DATE: 20181227
